FAERS Safety Report 26004330 (Version 1)
Quarter: 2025Q4

REPORT INFORMATION
  Report Type: Spontaneous
  Country: US (occurrence: US)
  Receive Date: 20251106
  Receipt Date: 20251106
  Transmission Date: 20260118
  Serious: No
  Sender: ROCHE
  Company Number: US-ROCHE-10000423582

PATIENT
  Sex: Female

DRUGS (9)
  1. XOLAIR [Suspect]
     Active Substance: OMALIZUMAB
     Indication: Urticaria
     Route: 058
  2. ZYRTEC ALLER CAP [Concomitant]
  3. ATENOLOL [Concomitant]
     Active Substance: ATENOLOL
  4. CALCIUM [Concomitant]
     Active Substance: CALCIUM
  5. HYDROXYZINE TAB [Concomitant]
  6. LEVOTHYROXIN TAB [Concomitant]
  7. MONTELUCAST TAB [Concomitant]
  8. ROSUVASTATIN [Concomitant]
     Active Substance: ROSUVASTATIN
  9. VITAMIN C TAB [Concomitant]

REACTIONS (2)
  - Drug ineffective [Unknown]
  - No adverse event [Unknown]
